FAERS Safety Report 9739111 (Version 2)
Quarter: 2013Q4

REPORT INFORMATION
  Report Type: Spontaneous
  Country: US (occurrence: US)
  Receive Date: 20131209
  Receipt Date: 20131219
  Transmission Date: 20140711
  Serious: No
  Sender: FDA-Public Use
  Company Number: US-BAYER-2013-149704

PATIENT
  Age: 76 Year
  Sex: Female
  Weight: 53.52 kg

DRUGS (2)
  1. ALEVE TABLET [Suspect]
     Indication: MUSCULOSKELETAL PAIN
     Dosage: 2 DF, QD
     Route: 048
     Dates: start: 20131202
  2. ALEVE TABLET [Suspect]
     Indication: PAIN PROPHYLAXIS

REACTIONS (7)
  - Drug ineffective [None]
  - Drug ineffective [None]
  - Drug ineffective [None]
  - Drug ineffective [None]
  - Off label use [None]
  - Incorrect drug administration duration [None]
  - Expired drug administered [None]
